FAERS Safety Report 20421931 (Version 1)
Quarter: 2022Q1

REPORT INFORMATION
  Report Type: Spontaneous
  Country: US (occurrence: None)
  Receive Date: 20220203
  Receipt Date: 20220203
  Transmission Date: 20220423
  Serious: No
  Sender: FDA-Public Use
  Company Number: 2022A047031

PATIENT
  Sex: Female

DRUGS (1)
  1. PULMICORT FLEXHALER [Suspect]
     Active Substance: BUDESONIDE
     Indication: COVID-19
     Dosage: 180 UG 1 PUFF ONCE DAILY
     Route: 055

REACTIONS (3)
  - Dyspnoea [Recovering/Resolving]
  - Device use issue [Recovered/Resolved]
  - Device malfunction [Unknown]
